FAERS Safety Report 7914704-7 (Version None)
Quarter: 2011Q4

REPORT INFORMATION
  Report Type: 
  Country: None (occurrence: None)
  Receive Date: 20111115
  Receipt Date: 20111109
  Transmission Date: 20120403
  Serious: Yes (Other)
  Sender: FDA-Public Use
  Company Number: PHHY2011BR099210

PATIENT
  Sex: Female

DRUGS (6)
  1. GALVUS MET COMBIPACK [Suspect]
     Indication: DIABETES MELLITUS
     Dosage: 1 DF, BID
  2. DIOVAN [Suspect]
     Dosage: 320 MG, 1 TABLET DAILY
  3. DIOVAN [Suspect]
     Dosage: 160 MG, UNK
  4. HYDROCHLOROTHIAZIDE [Suspect]
     Dosage: HALF TABLET DAILY
     Route: 048
  5. DIOVAN [Suspect]
     Indication: HYPERTENSION
     Dosage: 160 MG, UNK
  6. DRUG THERAPY NOS [Concomitant]
     Dosage: UNK

REACTIONS (3)
  - NAUSEA [None]
  - DIZZINESS [None]
  - RENAL DISORDER [None]
